FAERS Safety Report 4531519-0 (Version None)
Quarter: 2004Q4

REPORT INFORMATION
  Report Type: 
  Country: None (occurrence: None)
  Receive Date: 20041220
  Receipt Date: 20041208
  Transmission Date: 20050328
  Serious: Yes (Hospitalization)
  Sender: FDA-Public Use
  Company Number: US-JNJFOC-20040606827

PATIENT
  Sex: Female
  Weight: 95.71 kg

DRUGS (13)
  1. REMICADE [Suspect]
     Route: 042
  2. REMICADE [Suspect]
     Indication: CROHN'S DISEASE
     Route: 042
  3. METHOTREXATE SODIUM [Suspect]
     Indication: CROHN'S DISEASE
     Route: 049
  4. ASACOL [Concomitant]
  5. COLOCORT [Concomitant]
     Route: 054
  6. ROWASA [Concomitant]
     Route: 054
  7. VIOXX [Concomitant]
  8. HYOSCYAMINE [Concomitant]
  9. CYCLOBENZAPRINE [Concomitant]
  10. ULTRACET [Concomitant]
  11. SEROQUEL [Concomitant]
  12. PREMARIN [Concomitant]
  13. FOLIC ACID [Concomitant]

REACTIONS (3)
  - ACUTE RESPIRATORY DISTRESS SYNDROME [None]
  - PNEUMONITIS [None]
  - RESPIRATORY FAILURE [None]
